FAERS Safety Report 4276251-6 (Version None)
Quarter: 2004Q1

REPORT INFORMATION
  Report Type: 
  Country: None (occurrence: None)
  Receive Date: 20040121
  Receipt Date: 20031126
  Transmission Date: 20041129
  Serious: No
  Sender: FDA-Public Use
  Company Number: US-GLAXOSMITHKLINE-A0441180A

PATIENT
  Age: 62 Year
  Sex: Female

DRUGS (3)
  1. VENTOLIN [Suspect]
     Indication: PULMONARY FIBROSIS
     Dosage: 2PUFF FOUR TIMES PER DAY
     Route: 055
     Dates: start: 20031112
  2. SYNTHROID [Concomitant]
  3. DIURETIC [Concomitant]

REACTIONS (1)
  - DRUG INEFFECTIVE [None]
